FAERS Safety Report 18557437 (Version 2)
Quarter: 2021Q1

REPORT INFORMATION
  Report Type: Spontaneous
  Country: US (occurrence: US)
  Receive Date: 20201129
  Receipt Date: 20210128
  Transmission Date: 20210419
  Serious: Yes (Hospitalization)
  Sender: FDA-Public Use
  Company Number: US-DECIPHERA PHARMACEUTICALS LLC-2020-US-000679

PATIENT
  Sex: Male

DRUGS (3)
  1. LEVOTHYROXINE. [Concomitant]
     Active Substance: LEVOTHYROXINE
     Indication: PRODUCT USED FOR UNKNOWN INDICATION
     Dosage: UNK
     Route: 065
  2. QINLOCK [Suspect]
     Active Substance: RIPRETINIB
     Dosage: 150 MILLIGRAM, QD
     Route: 048
  3. QINLOCK [Suspect]
     Active Substance: RIPRETINIB
     Indication: GASTROINTESTINAL STROMAL TUMOUR
     Dosage: 150 MILLIGRAM, QD
     Route: 048
     Dates: start: 20200921

REACTIONS (4)
  - Seizure [Unknown]
  - Atrial fibrillation [Unknown]
  - Cardiomegaly [Unknown]
  - Alopecia [Not Recovered/Not Resolved]
